FAERS Safety Report 5177033-3 (Version None)
Quarter: 2006Q4

REPORT INFORMATION
  Report Type: 
  Country: None (occurrence: None)
  Receive Date: 20061218
  Receipt Date: 20061020
  Transmission Date: 20070319
  Serious: Yes (Hospitalization)
  Sender: FDA-Public Use
  Company Number: JP-GLAXOSMITHKLINE-B0443594A

PATIENT
  Age: 68 Year
  Sex: Female
  Weight: 47 kg

DRUGS (10)
  1. VALTREX [Suspect]
     Indication: HERPES ZOSTER
     Dosage: 1000MG THREE TIMES PER DAY
     Route: 048
     Dates: start: 20061016, end: 20061019
  2. LIVALO [Concomitant]
     Indication: HYPERCHOLESTEROLAEMIA
     Route: 048
     Dates: end: 20061019
  3. GASTER [Concomitant]
     Indication: GASTRITIS
     Dosage: 10MG PER DAY
     Route: 048
     Dates: end: 20061019
  4. LOXONIN [Concomitant]
     Indication: PAIN
     Route: 048
     Dates: start: 20061014, end: 20061019
  5. DEPAS [Concomitant]
     Indication: PAIN
     Route: 048
     Dates: start: 20061014, end: 20061019
  6. MARZULENE-S [Concomitant]
     Indication: GASTRITIS
     Dosage: 1.5G PER DAY
     Route: 048
     Dates: start: 20061014, end: 20061019
  7. PRORENAL [Concomitant]
     Route: 048
  8. EVISTA [Concomitant]
     Route: 048
  9. ONEALFA [Concomitant]
     Route: 048
  10. PENTCILLIN [Concomitant]
     Indication: PYREXIA
     Dosage: 2G PER DAY
     Route: 042
     Dates: start: 20061018, end: 20061019

REACTIONS (12)
  - ANOREXIA [None]
  - BLOOD CREATININE INCREASED [None]
  - BLOOD PRESSURE INCREASED [None]
  - CHEST DISCOMFORT [None]
  - HEADACHE [None]
  - HYPERTENSION [None]
  - MALAISE [None]
  - NAUSEA [None]
  - ORAL INTAKE REDUCED [None]
  - PAIN [None]
  - RENAL FAILURE ACUTE [None]
  - URINE OUTPUT INCREASED [None]
